FAERS Safety Report 4365118-0 (Version None)
Quarter: 2004Q2

REPORT INFORMATION
  Report Type: 
  Country: None (occurrence: None)
  Receive Date: 20040520
  Receipt Date: 20040513
  Transmission Date: 20050107
  Serious: Yes (Other)
  Sender: FDA-Public Use
  Company Number: HQWYE669330APR04

PATIENT
  Age: 36 Year
  Sex: Female

DRUGS (2)
  1. EFFEXOR [Suspect]
     Indication: DEPRESSION
     Dosage: 75 MG 3X PER 1 DAY
     Route: 048
     Dates: start: 20030801
  2. REMERON [Concomitant]

REACTIONS (2)
  - HERPES SIMPLEX [None]
  - PITYRIASIS ROSEA [None]
